FAERS Safety Report 19174908 (Version 1)
Quarter: 2021Q2

REPORT INFORMATION
  Report Type: Report from Study
  Country: ES (occurrence: ES)
  Receive Date: 20210423
  Receipt Date: 20210423
  Transmission Date: 20210717
  Serious: Yes (Other)
  Sender: FDA-Public Use
  Company Number: ES-VELOXIS PHARMACEUTICALS-2021VELES-000158

PATIENT
  Age: 66 Year
  Sex: Male
  Weight: 85.2 kg

DRUGS (2)
  1. ENVARSUS XR [Suspect]
     Active Substance: TACROLIMUS
     Indication: IMMUNOSUPPRESSION
     Dosage: 1.5 UNK, QD
     Route: 048
     Dates: start: 20190917, end: 20191001
  2. ENVARSUS XR [Suspect]
     Active Substance: TACROLIMUS
     Dosage: 1.29 UNK
     Route: 048
     Dates: start: 20200515

REACTIONS (2)
  - Donor specific antibody present [Recovered/Resolved]
  - Pyelitis [Recovered/Resolved]

NARRATIVE: CASE EVENT DATE: 20190917
